FAERS Safety Report 8446752 (Version 3)
Quarter: 2012Q4

REPORT INFORMATION
  Report Type: 
  Country: US (occurrence: US)
  Receive Date: 20120308
  Receipt Date: 20121012
  Transmission Date: 20130627
  Serious: Yes (Other)
  Sender: FDA-Public Use
  Company Number: US-US-EMD SERONO, INC.-7116073

PATIENT
  Age: 43 None
  Sex: Female
  Weight: 69 kg

DRUGS (20)
  1. REBIF [Suspect]
     Indication: MULTIPLE SCLEROSIS
     Route: 058
     Dates: start: 20080307
  2. VITAMIN D [Concomitant]
     Indication: SUPPLEMENTATION THERAPY
  3. CALCIUM WITH VITAMIN D [Concomitant]
     Indication: SUPPLEMENTATION THERAPY
  4. COQ10 [Concomitant]
     Indication: SUPPLEMENTATION THERAPY
  5. BPOLLEN [Concomitant]
     Indication: SUPPLEMENTATION THERAPY
  6. FISH OIL [Concomitant]
     Indication: SUPPLEMENTATION THERAPY
  7. MULTIVITAMIN [Concomitant]
     Indication: SUPPLEMENTATION THERAPY
  8. SUPER B COMPLEX [Concomitant]
     Indication: SUPPLEMENTATION THERAPY
  9. B-12 COMPLEX [Concomitant]
     Indication: SUPPLEMENTATION THERAPY
  10. CITALOPRAM [Concomitant]
     Indication: DEPRESSION
  11. CURINAL [Concomitant]
     Indication: GOUT
  12. UNSPECIFIED ANTIBIOTIC [Concomitant]
     Indication: HIDRADENITIS
  13. ERYTHROMYCIN [Concomitant]
     Indication: HIDRADENITIS
  14. SUDAFED PE [Concomitant]
     Indication: SINUS DISORDER
  15. ALPRAZOLAM [Concomitant]
     Indication: ANXIETY
  16. MECLIZINE [Concomitant]
     Indication: DIZZINESS
  17. HYDROCODONE APAP [Concomitant]
     Indication: PAIN
  18. MOTRIN [Concomitant]
     Indication: PREMEDICATION
  19. MELXOXICAM [Concomitant]
     Indication: INFLAMMATION
  20. AMPYRA [Concomitant]
     Indication: GAIT DISTURBANCE

REACTIONS (1)
  - Cholelithiasis [Recovered/Resolved]
